FAERS Safety Report 16704680 (Version 2)
Quarter: 2019Q3

REPORT INFORMATION
  Report Type: Spontaneous
  Country: US (occurrence: US)
  Receive Date: 20190814
  Receipt Date: 20190827
  Transmission Date: 20191004
  Serious: Yes (Other)
  Sender: FDA-Public Use
  Company Number: US-TEVA-2019-US-1090592

PATIENT
  Age: 44 Year
  Sex: Female

DRUGS (12)
  1. LEVOFLOXACIN. [Interacting]
     Active Substance: LEVOFLOXACIN
     Indication: BONE TUBERCULOSIS
  2. RIFAMPIN. [Concomitant]
     Active Substance: RIFAMPIN
     Indication: BONE TUBERCULOSIS
  3. GABAPENTIN. [Concomitant]
     Active Substance: GABAPENTIN
     Indication: BACK PAIN
     Dosage: THREE TIMES A DAY
     Route: 065
  4. BACLOFEN. [Concomitant]
     Active Substance: BACLOFEN
     Indication: BACK PAIN
     Dosage: THREE TIMES A DAY
     Route: 065
  5. ISONIAZID. [Interacting]
     Active Substance: ISONIAZID
     Indication: BONE TUBERCULOSIS
  6. LEVOFLOXACIN. [Interacting]
     Active Substance: LEVOFLOXACIN
     Indication: DISSEMINATED TUBERCULOSIS
     Dosage: 750 MILLIGRAM DAILY;
     Route: 065
  7. PYRIDOXINE [Concomitant]
     Active Substance: PYRIDOXINE
     Indication: DISSEMINATED TUBERCULOSIS
     Dosage: 50 MILLIGRAM DAILY;
     Route: 065
  8. RIFAMPIN. [Concomitant]
     Active Substance: RIFAMPIN
     Indication: DISSEMINATED TUBERCULOSIS
     Dosage: 900 MILLIGRAM DAILY;
     Route: 065
  9. VENLAFAXINE ER [Interacting]
     Active Substance: VENLAFAXINE HYDROCHLORIDE
     Indication: MAJOR DEPRESSION
     Dosage: 37.5 MILLIGRAM DAILY; EXTENDED RELEASE
     Route: 048
  10. TRAMADOL. [Concomitant]
     Active Substance: TRAMADOL
     Indication: BACK PAIN
     Dosage: AS NEEDED
     Route: 065
  11. ISONIAZID. [Suspect]
     Active Substance: ISONIAZID
     Indication: DISSEMINATED TUBERCULOSIS
     Dosage: 750 MILLIGRAM DAILY;
     Route: 065
  12. VENLAFAXINE ER [Interacting]
     Active Substance: VENLAFAXINE HYDROCHLORIDE
     Dosage: 75 MILLIGRAM DAILY; EXTENDED RELEASE
     Route: 048

REACTIONS (2)
  - Drug interaction [Unknown]
  - Focal dyscognitive seizures [Recovered/Resolved]
